FAERS Safety Report 6487143-6 (Version None)
Quarter: 2009Q4

REPORT INFORMATION
  Report Type: 
  Country: None (occurrence: None)
  Receive Date: 20091210
  Receipt Date: 20090831
  Transmission Date: 20100525
  Serious: No
  Sender: FDA-Public Use
  Company Number: US-AMGEN-KDL359442

PATIENT
  Sex: Female

DRUGS (3)
  1. ENBREL [Suspect]
     Indication: RHEUMATOID ARTHRITIS
     Route: 058
     Dates: start: 20090701
  2. PLAQUENIL [Concomitant]
     Route: 048
  3. SULFASALAZINE [Concomitant]
     Route: 048

REACTIONS (4)
  - CHEST PAIN [None]
  - COUGH [None]
  - INJECTION SITE PAIN [None]
  - OROPHARYNGEAL PAIN [None]
